FAERS Safety Report 4686685-3 (Version None)
Quarter: 2005Q2

REPORT INFORMATION
  Report Type: 
  Country: None (occurrence: None)
  Receive Date: 20050608
  Receipt Date: 20050531
  Transmission Date: 20051028
  Serious: Yes (Death, Life-Threatening)
  Sender: FDA-Public Use
  Company Number: 006#3#2005-00020

PATIENT
  Age: 69 Year
  Sex: Male

DRUGS (1)
  1. EDEX [Suspect]
     Indication: ERECTILE DYSFUNCTION
     Dosage: INTRACAVERNOUS
     Route: 017
     Dates: end: 20040223

REACTIONS (4)
  - BRAIN HERNIATION [None]
  - CEREBRAL HAEMORRHAGE [None]
  - HYPERTENSION [None]
  - NOSOCOMIAL INFECTION [None]
